FAERS Safety Report 25149202 (Version 3)
Quarter: 2025Q3

REPORT INFORMATION
  Report Type: Spontaneous
  Country: US (occurrence: US)
  Receive Date: 20250402
  Receipt Date: 20250709
  Transmission Date: 20251020
  Serious: No
  Sender: NOVARTIS
  Company Number: US-002147023-NVSC2025US054459

PATIENT
  Sex: Female

DRUGS (2)
  1. MEKINIST [Suspect]
     Active Substance: TRAMETINIB DIMETHYL SULFOXIDE
     Indication: Malignant nervous system neoplasm
     Dosage: 2 MG, QD
     Route: 048
     Dates: start: 202503
  2. TAFINLAR [Suspect]
     Active Substance: DABRAFENIB MESYLATE
     Indication: Malignant nervous system neoplasm
     Dosage: 150 MG, BID
     Route: 048
     Dates: start: 202503

REACTIONS (3)
  - Vision blurred [Unknown]
  - Diarrhoea [Unknown]
  - Visual impairment [Unknown]
